FAERS Safety Report 18980046 (Version 1)
Quarter: 2021Q1

REPORT INFORMATION
  Report Type: Spontaneous
  Country: US (occurrence: US)
  Receive Date: 20210308
  Receipt Date: 20210308
  Transmission Date: 20210420
  Serious: No
  Sender: FDA-Public Use
  Company Number: US-STRONGBRIDGE BIOPHARMA-2021-STR-000074

PATIENT
  Sex: Female

DRUGS (1)
  1. KEVEYIS [Suspect]
     Active Substance: DICHLORPHENAMIDE
     Indication: FAMILIAL PERIODIC PARALYSIS
     Dosage: 25MG IN THE MORNING AND 50MG IN THE EVENING
     Route: 048

REACTIONS (3)
  - Migraine [Unknown]
  - COVID-19 [Recovering/Resolving]
  - Wrong technique in product usage process [Unknown]
